FAERS Safety Report 8679282 (Version 3)
Quarter: 2012Q4

REPORT INFORMATION
  Report Type: 
  Country: CA (occurrence: CA)
  Receive Date: 20120724
  Receipt Date: 20120912
  Transmission Date: 20130627
  Serious: Yes (Hospitalization, Other)
  Sender: FDA-Public Use
  Company Number: PHHY2012CA062858

PATIENT
  Sex: Female

DRUGS (3)
  1. SANDOSTATIN LAR [Suspect]
     Indication: PANCREATIC NEUROENDOCRINE TUMOUR METASTATIC
     Dosage: 30 mg, once a month
     Route: 030
     Dates: start: 20100728
  2. RED BLOOD CELLS [Concomitant]
  3. FLUID [Concomitant]

REACTIONS (12)
  - Dehydration [Unknown]
  - Diarrhoea [Unknown]
  - Tooth abscess [Unknown]
  - Clostridium difficile infection [Unknown]
  - Neoplasm [Unknown]
  - Abdominal distension [Unknown]
  - Decreased appetite [Unknown]
  - Thirst [Unknown]
  - Abdominal rigidity [Unknown]
  - General physical health deterioration [Unknown]
  - Oedema peripheral [Unknown]
  - Asthenia [Unknown]
